FAERS Safety Report 10481601 (Version 2)
Quarter: 2014Q3

REPORT INFORMATION
  Report Type: Spontaneous
  Country: US (occurrence: US)
  Receive Date: 20140929
  Receipt Date: 20140929
  Transmission Date: 20150326
  Serious: Yes (Death, Hospitalization)
  Sender: FDA-Public Use
  Company Number: US-CELGENE-163-21880-14013895

PATIENT
  Age: 70 Year
  Sex: Female

DRUGS (2)
  1. REVLIMID [Suspect]
     Active Substance: LENALIDOMIDE
     Indication: GASTROINTESTINAL HAEMORRHAGE
  2. REVLIMID [Suspect]
     Active Substance: LENALIDOMIDE
     Indication: LYMPHOMA
     Dosage: 10 MILLIGRAM
     Route: 048
     Dates: start: 201401

REACTIONS (3)
  - Lymphoma [Fatal]
  - Gastrointestinal haemorrhage [Recovered/Resolved]
  - Lymphoma [Unknown]

NARRATIVE: CASE EVENT DATE: 20140313
